FAERS Safety Report 21913229 (Version 2)
Quarter: 2023Q1

REPORT INFORMATION
  Report Type: Spontaneous
  Country: US (occurrence: US)
  Receive Date: 20230125
  Receipt Date: 20230322
  Transmission Date: 20230418
  Serious: No
  Sender: FDA-Public Use
  Company Number: CA-ALLERGAN-2238247US

PATIENT
  Age: 34 Year
  Sex: Female
  Weight: 74.82 kg

DRUGS (11)
  1. BOTOX COSMETIC [Suspect]
     Active Substance: ONABOTULINUMTOXINA
     Indication: Maternal exposure timing unspecified
     Dosage: 10 UNITS, SINGLE
     Route: 063
     Dates: start: 20220623, end: 20220623
  2. BOTOX COSMETIC [Suspect]
     Active Substance: ONABOTULINUMTOXINA
     Dosage: 6-10 UNITS, SINGLE
     Route: 063
     Dates: start: 20220623, end: 20220623
  3. JUVEDERM [Suspect]
     Active Substance: HYALURONIC ACID
     Indication: Maternal exposure timing unspecified
     Dosage: 1 ML
     Route: 063
  4. JUVEDERM [Suspect]
     Active Substance: HYALURONIC ACID
     Dosage: 1 ML
     Route: 063
  5. JUVEDERM [Suspect]
     Active Substance: HYALURONIC ACID
     Dosage: 1 ML
     Route: 063
  6. JUVEDERM [Suspect]
     Active Substance: HYALURONIC ACID
     Dosage: 1 ML
     Route: 063
  7. JUVEDERM [Suspect]
     Active Substance: HYALURONIC ACID
     Dosage: 1 ML
     Route: 063
  8. JUVEDERM [Suspect]
     Active Substance: HYALURONIC ACID
     Dosage: 1 ML
     Route: 063
  9. VITAMINS [Concomitant]
     Active Substance: VITAMINS
     Indication: Maternal exposure timing unspecified
     Route: 063
  10. IBUPROFEN [Concomitant]
     Active Substance: IBUPROFEN
     Indication: Maternal exposure timing unspecified
     Route: 063
  11. PROBIOTICS [UMBRELLA TERM] [Concomitant]
     Indication: Product used for unknown indication

REACTIONS (1)
  - Exposure via breast milk [Unknown]

NARRATIVE: CASE EVENT DATE: 20220401
